FAERS Safety Report 21185195 (Version 1)
Quarter: 2022Q3

REPORT INFORMATION
  Report Type: Spontaneous
  Country: US (occurrence: None)
  Receive Date: 20220808
  Receipt Date: 20220808
  Transmission Date: 20221027
  Serious: No
  Sender: FDA-Public Use
  Company Number: None

PATIENT
  Age: 31 Year
  Sex: Female

DRUGS (3)
  1. TALTZ [Suspect]
     Active Substance: IXEKIZUMAB
     Indication: Pruritus
     Dosage: FREQUENCY : MONTHLY;?
     Route: 058
     Dates: start: 202204
  2. TALTZ [Suspect]
     Active Substance: IXEKIZUMAB
     Indication: Psoriasis
  3. TALTZ [Suspect]
     Active Substance: IXEKIZUMAB

REACTIONS (3)
  - Sinusitis [None]
  - Ear infection [None]
  - Therapy interrupted [None]
